FAERS Safety Report 8931696 (Version 1)
Quarter: 2012Q4

REPORT INFORMATION
  Report Type: Report from Study
  Country: US (occurrence: US)
  Receive Date: 20121128
  Receipt Date: 20121128
  Transmission Date: 20130627
  Serious: Yes (Other)
  Sender: FDA-Public Use
  Company Number: US-ROCHE-1156912

PATIENT
  Age: 40 Year
  Sex: Female

DRUGS (1)
  1. CAPECITABINE [Suspect]
     Indication: PANCREATIC CARCINOMA
     Route: 048
     Dates: start: 20100401

REACTIONS (2)
  - Malignant neoplasm progression [Unknown]
  - Full blood count decreased [Unknown]
